FAERS Safety Report 8181762-7 (Version None)
Quarter: 2012Q1

REPORT INFORMATION
  Report Type: 
  Country: None (occurrence: None)
  Receive Date: 20120302
  Receipt Date: 20110930
  Transmission Date: 20120608
  Serious: No
  Sender: FDA-Public Use
  Company Number: US-AMGEN-USASP2011050865

PATIENT
  Sex: Male

DRUGS (2)
  1. NPLATE [Suspect]
     Indication: IDIOPATHIC THROMBOCYTOPENIC PURPURA
     Dosage: 250 MUG/KG, UNK
     Dates: start: 20100203, end: 20101111
  2. NPLATE [Suspect]
     Dosage: 250 MUG/KG, QWK
     Route: 058
     Dates: start: 20111014

REACTIONS (2)
  - INGUINAL HERNIA [None]
  - CONTUSION [None]
